FAERS Safety Report 10585735 (Version 2)
Quarter: 2014Q4

REPORT INFORMATION
  Report Type: Report from Study
  Country: US (occurrence: US)
  Receive Date: 20141114
  Receipt Date: 20141114
  Transmission Date: 20150529
  Serious: Yes (Other)
  Sender: FDA-Public Use
  Company Number: US-ABBVIE-14P-163-1282637-00

PATIENT
  Age: 27 Year
  Sex: Female
  Weight: 45.4 kg

DRUGS (7)
  1. HUMIRA [Suspect]
     Active Substance: ADALIMUMAB
     Route: 058
     Dates: start: 201403, end: 201403
  2. HUMIRA [Suspect]
     Active Substance: ADALIMUMAB
     Route: 058
     Dates: start: 201404
  3. PRENATAL VITAMINS [Concomitant]
     Active Substance: VITAMINS
     Indication: PRODUCT USED FOR UNKNOWN INDICATION
  4. IRON [Concomitant]
     Active Substance: IRON
     Indication: MINERAL SUPPLEMENTATION
  5. LIALDA [Concomitant]
     Active Substance: MESALAMINE
     Indication: CROHN^S DISEASE
  6. PITOCIN [Concomitant]
     Active Substance: OXYTOCIN
     Indication: LABOUR INDUCTION
     Route: 042
     Dates: start: 20140801, end: 20140801
  7. HUMIRA [Suspect]
     Active Substance: ADALIMUMAB
     Indication: CROHN^S DISEASE
     Route: 058
     Dates: start: 201403, end: 201403

REACTIONS (7)
  - Placental disorder [Recovered/Resolved]
  - Pre-eclampsia [Recovered/Resolved]
  - Premature baby [Recovered/Resolved]
  - Fungal skin infection [Recovered/Resolved]
  - Prolonged labour [Recovered/Resolved]
  - Mastitis [Recovered/Resolved]
  - Uterine infection [Recovered/Resolved]

NARRATIVE: CASE EVENT DATE: 2014
